FAERS Safety Report 21972841 (Version 1)
Quarter: 2023Q1

REPORT INFORMATION
  Report Type: Report from Study
  Country: JP (occurrence: JP)
  Receive Date: 20230209
  Receipt Date: 20230209
  Transmission Date: 20230418
  Serious: Yes (Other)
  Sender: FDA-Public Use
  Company Number: JP-MYLANLABS-2023M1013124

PATIENT
  Age: 62 Year
  Sex: Female

DRUGS (4)
  1. PREDNISOLONE [Suspect]
     Active Substance: PREDNISOLONE
     Indication: Lupus nephritis
     Dosage: QD, INITIAL DOSE NOT STATED; SCHEDULED DOSE REDUCTION BY 10 MG/DAY EVERY WEEK TO REACH 30 MG/DAY AND
     Route: 048
  2. TACROLIMUS [Suspect]
     Active Substance: TACROLIMUS
     Indication: Lupus nephritis
     Dosage: 3 MILLIGRAM, QD
     Route: 065
  3. METHYLPREDNISOLONE [Suspect]
     Active Substance: METHYLPREDNISOLONE
     Indication: Lupus nephritis
     Dosage: 0.5 GRAM, QD, PULSE THERAPY .
     Route: 042
  4. MIZORIBINE [Suspect]
     Active Substance: MIZORIBINE
     Indication: Lupus nephritis
     Dosage: 300 MILLIGRAM, QD, ONCE DAILY FOR 3 DAYS PER WEEK .
     Route: 065

REACTIONS (1)
  - Drug ineffective [Unknown]
